FAERS Safety Report 10008721 (Version 2)
Quarter: 2014Q1

REPORT INFORMATION
  Report Type: Spontaneous
  Country: US (occurrence: US)
  Receive Date: 20140312
  Receipt Date: 20140312
  Transmission Date: 20141002
  Serious: No
  Sender: FDA-Public Use
  Company Number: US-INCYTE CORPORATION-2012IN000290

PATIENT
  Age: 78 Year
  Sex: Female
  Weight: 56.69 kg

DRUGS (5)
  1. JAKAFI [Suspect]
     Indication: MYELOFIBROSIS
     Dosage: 15 MG, BID
     Route: 048
     Dates: start: 20120211
  2. ATENOLOL [Concomitant]
     Dosage: 25 MG, QD
     Route: 048
  3. LISINOPRIL [Concomitant]
     Dosage: 5 MG, QD
     Route: 048
  4. ATORVASTATIN [Concomitant]
     Dosage: 10 MG, QD
     Route: 048
  5. ASPIRIN [Concomitant]
     Dosage: 81 MG, QD

REACTIONS (2)
  - Tooth loss [Unknown]
  - Somnolence [Unknown]
